FAERS Safety Report 8620539-2 (Version None)
Quarter: 2012Q3

REPORT INFORMATION
  Report Type: 
  Country: None (occurrence: None)
  Receive Date: 20120824
  Receipt Date: 20120816
  Transmission Date: 20120928
  Serious: Yes (Life-Threatening, Hospitalization, Other)
  Sender: FDA-Public Use
  Company Number: CN-ASTRAZENECA-2011SE41023

PATIENT
  Age: 60 Year
  Sex: Male
  Weight: 55.8 kg

DRUGS (7)
  1. CLOPIDEGREL [Concomitant]
  2. TRIMETAZIDINE [Concomitant]
  3. AMLODIPINE [Concomitant]
  4. ASPIRIN [Concomitant]
  5. CRESTOR [Suspect]
     Route: 048
     Dates: start: 20110603, end: 20110609
  6. TCMS [Concomitant]
     Indication: CARDIOVASCULAR DISORDER
  7. CRESTOR [Suspect]
     Route: 048
     Dates: start: 20110603, end: 20110609

REACTIONS (7)
  - MULTI-ORGAN FAILURE [None]
  - CHEST PAIN [None]
  - RESPIRATORY FAILURE [None]
  - DYSARTHRIA [None]
  - HEMIPARESIS [None]
  - CEREBRAL INFARCTION [None]
  - RHABDOMYOLYSIS [None]
